FAERS Safety Report 24293696 (Version 1)
Quarter: 2024Q3

REPORT INFORMATION
  Report Type: Spontaneous
  Country: US (occurrence: None)
  Receive Date: 20240906
  Receipt Date: 20240906
  Transmission Date: 20241016
  Serious: No
  Sender: DOMPE FARMACEUTICI
  Company Number: US-FARMAPROD-202402-0566

PATIENT
  Sex: Female

DRUGS (8)
  1. OXERVATE [Suspect]
     Active Substance: CENEGERMIN-BKBJ
     Indication: Neurotrophic keratopathy
     Route: 047
     Dates: start: 20240111, end: 20240308
  2. OXERVATE [Suspect]
     Active Substance: CENEGERMIN-BKBJ
  3. LOTEMAX [Concomitant]
     Active Substance: LOTEPREDNOL ETABONATE
     Dosage: DROPS GEL
  4. RHOPRESSA [Concomitant]
     Active Substance: NETARSUDIL MESYLATE
  5. MIEBO [Concomitant]
     Active Substance: PERFLUOROHEXYLOCTANE
  6. OMEGA-3-FISH OIL-VIT D3 [Concomitant]
  7. MULTIVITAMIN 50 PLUS [Concomitant]
  8. VITAMIN K [Concomitant]
     Active Substance: PHYTONADIONE
     Dosage: LIQUID

REACTIONS (4)
  - Eye pain [Recovering/Resolving]
  - Photophobia [Not Recovered/Not Resolved]
  - Somnolence [Unknown]
  - Lacrimation increased [Not Recovered/Not Resolved]
